FAERS Safety Report 8171192-6 (Version None)
Quarter: 2012Q1

REPORT INFORMATION
  Report Type: 
  Country: None (occurrence: None)
  Receive Date: 20120228
  Receipt Date: 20111215
  Transmission Date: 20120608
  Serious: No
  Sender: FDA-Public Use
  Company Number: US-BRISTOL-MYERS SQUIBB COMPANY-16296063

PATIENT
  Age: 65 Year
  Sex: Male
  Weight: 124 kg

DRUGS (2)
  1. VICTOZA [Concomitant]
     Indication: DIABETES MELLITUS
  2. ONGLYZA [Suspect]

REACTIONS (1)
  - ADVERSE EVENT [None]
